FAERS Safety Report 5422930-4 (Version None)
Quarter: 2007Q3

REPORT INFORMATION
  Report Type: 
  Country: None (occurrence: None)
  Receive Date: 20070822
  Receipt Date: 20070810
  Transmission Date: 20080115
  Serious: Yes (Hospitalization)
  Sender: FDA-Public Use
  Company Number: FR-PFIZER INC-2007065034

PATIENT
  Sex: Female
  Weight: 56 kg

DRUGS (12)
  1. SU-011,248 [Suspect]
     Indication: RENAL CELL CARCINOMA STAGE UNSPECIFIED
     Route: 048
  2. LEVOTHYROXINE SODIUM [Concomitant]
     Route: 048
  3. SOPROL [Concomitant]
     Route: 048
  4. NEXIUM [Concomitant]
     Route: 048
  5. ACETAMINOPHEN [Concomitant]
     Route: 048
  6. ZOFRAN [Concomitant]
     Route: 048
  7. ARESTAL [Concomitant]
     Route: 048
  8. ZANIDIP [Concomitant]
     Route: 048
  9. PRETERAX [Concomitant]
     Route: 048
  10. ALLOPURINOL [Concomitant]
     Route: 048
  11. GAVISCON [Concomitant]
     Route: 048
  12. EUPRESSYL [Concomitant]
     Route: 048

REACTIONS (1)
  - PROTEINURIA [None]
